FAERS Safety Report 11003482 (Version 1)
Quarter: 2015Q2

REPORT INFORMATION
  Report Type: Spontaneous
  Country: US (occurrence: None)
  Receive Date: 20150408
  Receipt Date: 20150408
  Transmission Date: 20150821
  Serious: Yes (Hospitalization)
  Sender: FDA-Public Use
  Company Number: None

PATIENT
  Age: 59 Year
  Sex: Male
  Weight: 61.1 kg

DRUGS (1)
  1. ABIRATERONE [Suspect]
     Active Substance: ABIRATERONE
     Dates: end: 20150328

REACTIONS (11)
  - Asthenia [None]
  - Blood calcium decreased [None]
  - Thrombocytopenia [None]
  - Hypophosphataemia [None]
  - Prostate cancer metastatic [None]
  - Faecal incontinence [None]
  - Bone disorder [None]
  - Urinary incontinence [None]
  - Normochromic normocytic anaemia [None]
  - Fatigue [None]
  - Disease progression [None]

NARRATIVE: CASE EVENT DATE: 20150329
